FAERS Safety Report 14432600 (Version 2)
Quarter: 2018Q1

REPORT INFORMATION
  Report Type: Spontaneous
  Country: AU (occurrence: AU)
  Receive Date: 20180124
  Receipt Date: 20180214
  Transmission Date: 20180509
  Serious: Yes (Hospitalization, Other)
  Sender: FDA-Public Use
  Company Number: AU-IMPAX LABORATORIES, INC-2018-IPXL-00166

PATIENT
  Age: 69 Year
  Sex: Female

DRUGS (1)
  1. GRISEOFULVIN ULTRAMICROSIZE [Suspect]
     Active Substance: GRISEOFULVIN
     Indication: TINEA INFECTION
     Dosage: 500 MG, DAILY
     Route: 065

REACTIONS (1)
  - Drug reaction with eosinophilia and systemic symptoms [Recovered/Resolved]
